FAERS Safety Report 5005714-0 (Version None)
Quarter: 2006Q2

REPORT INFORMATION
  Report Type: 
  Country: None (occurrence: None)
  Receive Date: 20060516
  Receipt Date: 20060426
  Transmission Date: 20061013
  Serious: Yes (Hospitalization, Other)
  Sender: FDA-Public Use
  Company Number: DE200605000620

PATIENT
  Age: 46 Year
  Sex: Female

DRUGS (2)
  1. HUMALOG [Suspect]
     Dates: start: 19960101
  2. KREON (PANCREATIN) [Concomitant]

REACTIONS (6)
  - DYSPEPSIA [None]
  - HAEMANGIOMA OF LIVER [None]
  - METASTASES TO LIVER [None]
  - PANCREATIC CARCINOMA [None]
  - TUMOUR MARKER INCREASED [None]
  - WEIGHT DECREASED [None]
